FAERS Safety Report 19876096 (Version 1)
Quarter: 2021Q3

REPORT INFORMATION
  Report Type: Spontaneous
  Country: AU (occurrence: AU)
  Receive Date: 20210924
  Receipt Date: 20210924
  Transmission Date: 20211014
  Serious: Yes (Hospitalization)
  Sender: FDA-Public Use
  Company Number: AU-TEVA-2021-AU-1958184

PATIENT
  Age: 17 Year
  Sex: Male

DRUGS (10)
  1. NORMAL SALINE [Concomitant]
     Active Substance: SODIUM CHLORIDE
     Indication: VEHICLE SOLUTION USE
     Dosage: THE NEXT DAY, 5MLS OF STERILE NORMAL SALINE IN EACH MUSCLE, IN ONE SITE
     Route: 030
     Dates: start: 2020, end: 2020
  2. TIZANIDINE. [Concomitant]
     Active Substance: TIZANIDINE
     Indication: MUSCLE SPASTICITY
     Route: 065
  3. GENTAMICIN. [Suspect]
     Active Substance: GENTAMICIN
     Indication: URINARY TRACT INFECTION BACTERIAL
     Dosage: GIVEN FOR TWO CONSECUTIVE DAYS INTRAMUSCULAR GENTAMICIN 160 MG PER DAY (IN TWO SITES ON ANTERIOR ...
     Route: 030
  4. NORMAL SALINE [Concomitant]
     Active Substance: SODIUM CHLORIDE
     Indication: VEHICLE SOLUTION USE
     Dosage: INJECTED IN THE ADDUCTOR MAGNUS MUSCLES
     Route: 030
     Dates: start: 2020, end: 2020
  5. PREGABALIN. [Suspect]
     Active Substance: PREGABALIN
     Indication: MUSCLE SPASTICITY
     Route: 065
  6. ONABOTULINUM TOXIN A [Suspect]
     Active Substance: ONABOTULINUMTOXINA
     Indication: MUSCLE SPASTICITY
     Dosage: THE ADDUCTOR MAGNUS MUSCLES WERE INJECTED WITH BOTULINUM?TOXIN?A 100UNITS (U) EACH DILUTED WITH 2...
     Route: 030
     Dates: start: 2020, end: 2020
  7. ONABOTULINUM TOXIN A [Suspect]
     Active Substance: ONABOTULINUMTOXINA
     Indication: MUSCLE SPASTICITY
     Dosage: THE NEXT DAY THE ILIO?PSOAS MUSCLES WERE INJECTED BY A RADIOLOGIST, USING STERILE TECHNIQUE; BOTU...
     Route: 030
     Dates: start: 2020, end: 2020
  8. BACLOFEN. [Suspect]
     Active Substance: BACLOFEN
     Indication: MUSCLE SPASTICITY
     Route: 048
  9. INFLUENZA VACCINATION [Suspect]
     Active Substance: INFLUENZA VIRUS VACCINE
     Indication: INFLUENZA IMMUNISATION
     Route: 065
     Dates: start: 2020, end: 2020
  10. GENTAMICIN. [Suspect]
     Active Substance: GENTAMICIN
     Indication: KLEBSIELLA INFECTION

REACTIONS (3)
  - Liver function test abnormal [Unknown]
  - Myositis [Recovering/Resolving]
  - Somnolence [Unknown]

NARRATIVE: CASE EVENT DATE: 202005
